FAERS Safety Report 9651035 (Version 6)
Quarter: 2014Q2

REPORT INFORMATION
  Report Type: Report from Study
  Country: US (occurrence: US)
  Receive Date: 20131029
  Receipt Date: 20140627
  Transmission Date: 20141212
  Serious: Yes (Hospitalization)
  Sender: FDA-Public Use
  Company Number: PHEH2013US022439

PATIENT
  Age: 6 Year
  Sex: Female
  Weight: 16.9 kg

DRUGS (18)
  1. ILARIS [Suspect]
     Indication: CRYOPYRIN ASSOCIATED PERIODIC SYNDROME
     Dosage: 60 MG, UNK
     Route: 058
     Dates: start: 20131011, end: 20131011
  2. ILARIS [Suspect]
     Indication: PYREXIA
     Dosage: 150 MG, UNK
     Route: 058
  3. ILARIS [Suspect]
     Dosage: 50 MG, UNK
  4. KINERET [Concomitant]
     Indication: PYREXIA
     Dosage: 100 MG, QD
     Route: 058
     Dates: end: 20131010
  5. KINERET [Concomitant]
     Dosage: 100 MG, BID
     Route: 058
  6. PYRIDOXINE [Concomitant]
     Indication: PYREXIA
     Dosage: 50 MG, EVERY DAY
     Route: 048
  7. PREVACID [Concomitant]
     Dosage: 15 MG, EVERY DAY
     Route: 048
  8. ORAPRED [Concomitant]
     Dosage: 5 ML, BID
  9. INDOCIN [Concomitant]
     Indication: PYREXIA
     Dosage: 3 ML, BID
     Route: 048
  10. FAMODITINE [Concomitant]
     Dosage: 1 ML, BID
  11. LEVSIN [Concomitant]
     Indication: ABDOMINAL PAIN UPPER
     Dosage: 0.125 MG, Q4HR
  12. KEPPRA [Concomitant]
     Indication: CONVULSION
     Dosage: 800 MG, BID
     Route: 048
  13. KEPPRA [Concomitant]
     Dosage: 600 MG, BID
     Route: 048
  14. KEPPRA [Concomitant]
     Dosage: 500 MG, BID
  15. DIASTAT//DIAZEPAM [Concomitant]
     Dosage: 5 MG, PRN
  16. DIASTAT//DIAZEPAM [Concomitant]
     Dosage: 7.5 MG, PRN
  17. POLYETHYLENE GLYCOL 3350 [Concomitant]
     Dosage: 17 G, EVERY DAY
     Route: 048
  18. SENNA [Concomitant]
     Dosage: 8.8 MG, BID
     Route: 048

REACTIONS (3)
  - Pyrexia [Recovered/Resolved]
  - Convulsion [Recovered/Resolved]
  - Treatment failure [Unknown]
